FAERS Safety Report 14362672 (Version 2)
Quarter: 2018Q1

REPORT INFORMATION
  Report Type: Other
  Country: IT (occurrence: IT)
  Receive Date: 20180108
  Receipt Date: 20180116
  Transmission Date: 20180509
  Serious: Yes (Hospitalization)
  Sender: FDA-Public Use
  Company Number: IT-VALIDUS PHARMACEUTICALS LLC-IT-2018VAL000032

PATIENT
  Age: 92 Year
  Sex: Female

DRUGS (4)
  1. LASIX [Suspect]
     Active Substance: FUROSEMIDE
     Indication: HYPERTENSION
     Dosage: 25 MG, QD
     Route: 048
     Dates: start: 20170101, end: 20170715
  2. ZYLLT [Concomitant]
     Active Substance: CLOPIDOGREL BISULFATE
     Indication: PRODUCT USED FOR UNKNOWN INDICATION
  3. CARDICOR [Suspect]
     Active Substance: BISOPROLOL
     Indication: HYPERTENSION
     Dosage: 1.25 MG, QD
     Route: 048
     Dates: start: 20170101, end: 20170715
  4. TRIATEC                            /00885601/ [Suspect]
     Active Substance: RAMIPRIL
     Indication: HYPERTENSION
     Dosage: 5 MG, QD
     Route: 048
     Dates: start: 20170101, end: 20170715

REACTIONS (3)
  - Cardiac failure [Unknown]
  - Hypotension [Unknown]
  - Vomiting [Unknown]

NARRATIVE: CASE EVENT DATE: 20170715
